FAERS Safety Report 5025873-3 (Version None)
Quarter: 2006Q2

REPORT INFORMATION
  Report Type: 
  Country: None (occurrence: None)
  Receive Date: 20060601
  Receipt Date: 20060601
  Transmission Date: 20061013
  Serious: Yes (Other)
  Sender: FDA-Public Use
  Company Number: None

PATIENT
  Sex: Female
  Weight: 63.5036 kg

DRUGS (1)
  1. GLIPIZIDE [Suspect]
     Indication: DIABETES MELLITUS NON-INSULIN-DEPENDENT
     Dosage: 10 MG BID PO
     Route: 048
     Dates: start: 20051031

REACTIONS (2)
  - BLOOD GLUCOSE FLUCTUATION [None]
  - DIABETES MELLITUS INADEQUATE CONTROL [None]
